FAERS Safety Report 8179025-9 (Version None)
Quarter: 2012Q1

REPORT INFORMATION
  Report Type: 
  Country: None (occurrence: None)
  Receive Date: 20120302
  Receipt Date: 20120223
  Transmission Date: 20120608
  Serious: No
  Sender: FDA-Public Use
  Company Number: US-BIOGENIDEC-2012BI007108

PATIENT
  Sex: Male

DRUGS (2)
  1. AVONEX [Suspect]
     Route: 030
     Dates: start: 20110409
  2. AVONEX [Suspect]
     Indication: MULTIPLE SCLEROSIS
     Route: 030
     Dates: start: 19990301, end: 20090901

REACTIONS (6)
  - COGNITIVE DISORDER [None]
  - BALANCE DISORDER [None]
  - DIPLOPIA [None]
  - HEMIPARESIS [None]
  - STRESS [None]
  - VISION BLURRED [None]
